FAERS Safety Report 7343741-9 (Version None)
Quarter: 2011Q1

REPORT INFORMATION
  Report Type: 
  Country: None (occurrence: None)
  Receive Date: 20110310
  Receipt Date: 20101217
  Transmission Date: 20110831
  Serious: No
  Sender: FDA-Public Use
  Company Number: A0900351A

PATIENT
  Age: 59 Year

DRUGS (1)
  1. TARGET NICOTINE GUM 4MG, MINT [Suspect]

REACTIONS (4)
  - NICOTINE DEPENDENCE [None]
  - INCREASED UPPER AIRWAY SECRETION [None]
  - INTENTIONAL DRUG MISUSE [None]
  - COUGH [None]
